FAERS Safety Report 9472999 (Version 2)
Quarter: 2013Q3

REPORT INFORMATION
  Report Type: Spontaneous
  Country: US (occurrence: US)
  Receive Date: 20130823
  Receipt Date: 20130823
  Transmission Date: 20140515
  Serious: No
  Sender: FDA-Public Use
  Company Number: US-PFIZER INC-2013228906

PATIENT
  Age: 53 Year
  Sex: Female

DRUGS (19)
  1. NEURONTIN [Suspect]
     Indication: NEURALGIA
     Dosage: 2 DF, 1X/DAY
     Route: 048
     Dates: start: 20090404
  2. PREMARIN [Suspect]
     Dosage: 0.625 MG, 1X/DAY
  3. DETROL LA [Suspect]
     Dosage: 4 MG, 1X/DAY
  4. ADVAIR [Concomitant]
  5. CLARITIN [Concomitant]
  6. LASIX [Concomitant]
  7. SINGULAIR [Concomitant]
     Dosage: UNK
  8. ZANTAC [Concomitant]
     Dosage: UNK
  9. FISH OIL [Concomitant]
     Dosage: UNK
  10. IBUPROFEN [Concomitant]
     Dosage: UNK
  11. POTASSIUM [Concomitant]
     Dosage: UNK
  12. ALBUTEROL [Concomitant]
     Dosage: UNK
  13. PRO-AIR [Concomitant]
     Dosage: UNK
  14. REQUIP [Concomitant]
     Dosage: UNK
  15. VITAMIN B6 [Concomitant]
     Dosage: UNK
  16. VITAMIN C [Concomitant]
     Dosage: UNK
  17. VITAMIN E [Concomitant]
     Dosage: UNK
  18. ASPIRIN [Concomitant]
     Dosage: UNK
  19. MULTIVITAMINS [Concomitant]

REACTIONS (1)
  - Weight decreased [Unknown]
